FAERS Safety Report 13724556 (Version 1)
Quarter: 2017Q3

REPORT INFORMATION
  Report Type: Spontaneous
  Country: JP (occurrence: JP)
  Receive Date: 20170706
  Receipt Date: 20170706
  Transmission Date: 20171127
  Serious: Yes (Other)
  Sender: FDA-Public Use
  Company Number: JP-PFIZER INC-2017288483

PATIENT
  Sex: Female

DRUGS (1)
  1. ZYVOX [Suspect]
     Active Substance: LINEZOLID
     Indication: SERRATIA INFECTION
     Dosage: UNK

REACTIONS (2)
  - Product use in unapproved indication [Unknown]
  - Septic shock [Unknown]
